FAERS Safety Report 9036497 (Version 1)
Quarter: 2013Q1

REPORT INFORMATION
  Report Type: Report from Study
  Country: US (occurrence: US)
  Receive Date: 20130129
  Receipt Date: 20130129
  Transmission Date: 20140127
  Serious: No
  Sender: FDA-Public Use
  Company Number: US-ABBOTT-12P-163-0895997-00

PATIENT
  Sex: Female
  Weight: 68.1 kg

DRUGS (3)
  1. HUMIRA 40 MG/0.8 ML PEN [Suspect]
     Indication: CROHN^S DISEASE
     Dosage: (160 MG, ONCE)
     Route: 058
     Dates: start: 20111214, end: 20111214
  2. HUMIRA 40 MG/0.8 ML PEN [Suspect]
     Dosage: ONCE
     Route: 058
     Dates: start: 20111228, end: 20111228
  3. HUMIRA 40 MG/0.8 ML PEN [Suspect]
     Route: 058
     Dates: start: 20120111

REACTIONS (2)
  - Therapeutic response unexpected [Not Recovered/Not Resolved]
  - Therapeutic response unexpected [Not Recovered/Not Resolved]
